FAERS Safety Report 5870963-6 (Version None)
Quarter: 2008Q3

REPORT INFORMATION
  Report Type: 
  Country: None (occurrence: None)
  Receive Date: 20080904
  Receipt Date: 20080822
  Transmission Date: 20090109
  Serious: Yes (Death, Hospitalization)
  Sender: FDA-Public Use
  Company Number: JP-ABBOTT-07P-087-0428389-00

PATIENT
  Age: 83 Year
  Sex: Male
  Weight: 56 kg

DRUGS (4)
  1. LUPRON DEPOT [Suspect]
     Indication: PROSTATE CANCER STAGE II
     Route: 058
     Dates: start: 20061106, end: 20070730
  2. LUPRON DEPOT [Suspect]
     Dates: start: 20060227, end: 20061002
  3. LUPRON DEPOT [Suspect]
     Dates: start: 20070730, end: 20070730
  4. BICALUTAMIDE [Concomitant]
     Indication: PROSTATE CANCER STAGE II
     Route: 048
     Dates: start: 20060227, end: 20070423

REACTIONS (4)
  - HEPATIC FUNCTION ABNORMAL [None]
  - HYPERURICAEMIA [None]
  - PROSTATE CANCER RECURRENT [None]
  - RENAL IMPAIRMENT [None]
